FAERS Safety Report 17982559 (Version 4)
Quarter: 2020Q4

REPORT INFORMATION
  Report Type: Other
  Country: DE (occurrence: DE)
  Receive Date: 20200706
  Receipt Date: 20201124
  Transmission Date: 20210113
  Serious: No
  Sender: FDA-Public Use
  Company Number: DE-ROCHE-2636591

PATIENT
  Age: 51 Year
  Sex: Female

DRUGS (6)
  1. OCREVUS [Suspect]
     Active Substance: OCRELIZUMAB
     Route: 042
     Dates: start: 20200310
  2. OCREVUS [Suspect]
     Active Substance: OCRELIZUMAB
     Indication: PRIMARY PROGRESSIVE MULTIPLE SCLEROSIS
     Route: 042
     Dates: start: 20200224
  3. OCREVUS [Suspect]
     Active Substance: OCRELIZUMAB
     Route: 042
     Dates: start: 20200917
  4. TILIDIN [Concomitant]
     Active Substance: NALOXONE HYDROCHLORIDE\TILIDINE HYDROCHLORIDE
  5. BEROTEC [Concomitant]
     Active Substance: FENOTEROL HYDROBROMIDE
  6. FAMPYRA [Concomitant]
     Active Substance: DALFAMPRIDINE

REACTIONS (9)
  - Fall [Unknown]
  - Bursitis [Recovered/Resolved]
  - Muscle tightness [Recovered/Resolved]
  - Oral herpes [Recovered/Resolved]
  - Pain [Recovering/Resolving]
  - Fatigue [Recovered/Resolved]
  - Vitamin D decreased [Not Recovered/Not Resolved]
  - Contusion [Recovered/Resolved]
  - Tendon injury [Recovering/Resolving]

NARRATIVE: CASE EVENT DATE: 20200317
